FAERS Safety Report 25198378 (Version 1)
Quarter: 2025Q2

REPORT INFORMATION
  Report Type: Spontaneous
  Country: CN (occurrence: CN)
  Receive Date: 20250415
  Receipt Date: 20250415
  Transmission Date: 20250716
  Serious: Yes (Life-Threatening, Hospitalization, Other)
  Sender: Haleon PLC
  Company Number: CN-HALEON-2237527

PATIENT
  Age: 62 Year
  Sex: Male
  Weight: 55 kg

DRUGS (7)
  1. DICLOFENAC SODIUM [Suspect]
     Active Substance: DICLOFENAC SODIUM
     Indication: Analgesic therapy
     Route: 048
     Dates: start: 20250301, end: 20250401
  2. MORPHINE HYDROCHLORIDE [Concomitant]
     Active Substance: MORPHINE HYDROCHLORIDE
     Indication: Analgesic therapy
     Dosage: SUSTAINED-RELEASE TABLETS
     Route: 048
     Dates: start: 20250301, end: 20250401
  3. EPINEPHRINE [Concomitant]
     Active Substance: EPINEPHRINE
     Indication: Product used for unknown indication
     Route: 042
  4. ESOMEPRAZOLE SODIUM [Concomitant]
     Active Substance: ESOMEPRAZOLE SODIUM
     Indication: Product used for unknown indication
     Dosage: FIRST ADMIN DATE: 2025-04
     Route: 041
     Dates: end: 20250404
  5. SUCRALFATE [Concomitant]
     Active Substance: SUCRALFATE
     Indication: Product used for unknown indication
     Dosage: FIRST ADMIN DATE: 2025-04
     Route: 048
     Dates: end: 20250404
  6. SODIUM BICARBONATE [Concomitant]
     Active Substance: SODIUM BICARBONATE
     Indication: Product used for unknown indication
     Route: 041
  7. NIKETHAMIDE [Concomitant]
     Active Substance: NIKETHAMIDE
     Indication: Product used for unknown indication

REACTIONS (19)
  - Cardiac arrest [Unknown]
  - Coronary artery disease [Unknown]
  - Acute myocardial infarction [Unknown]
  - Melaena [Unknown]
  - Haemoglobin decreased [Unknown]
  - Anaemia [Not Recovered/Not Resolved]
  - Gastrointestinal haemorrhage [Unknown]
  - Trismus [Unknown]
  - Peptic ulcer [Unknown]
  - Staring [Unknown]
  - Gastritis erosive [Unknown]
  - Product use issue [Unknown]
  - Mydriasis [Unknown]
  - Pupillary reflex impaired [Unknown]
  - Blood pressure immeasurable [Unknown]
  - Oxygen saturation immeasurable [Unknown]
  - Heart rate abnormal [Unknown]
  - Electrocardiogram abnormal [Unknown]
  - Pupil fixed [Unknown]

NARRATIVE: CASE EVENT DATE: 20250404
